APPROVED DRUG PRODUCT: FLUOCINOLONE ACETONIDE
Active Ingredient: FLUOCINOLONE ACETONIDE
Strength: 0.01%
Dosage Form/Route: OIL;TOPICAL
Application: A091514 | Product #001
Applicant: SCIEGEN PHARMACEUTICALS INC
Approved: Jun 25, 2015 | RLD: No | RS: No | Type: DISCN